FAERS Safety Report 24228336 (Version 1)
Quarter: 2024Q3

REPORT INFORMATION
  Report Type: Spontaneous
  Country: US (occurrence: US)
  Receive Date: 20240820
  Receipt Date: 20240820
  Transmission Date: 20241017
  Serious: Yes (Other)
  Sender: BIOCODEX
  Company Number: US-BIOCODEX2-2024000900

PATIENT
  Age: 4 Year
  Sex: Male
  Weight: 19 kg

DRUGS (5)
  1. DIACOMIT [Suspect]
     Active Substance: STIRIPENTOL
     Indication: Severe myoclonic epilepsy of infancy
     Dosage: 250 MG BY MOUTH THREE TIMES DAILY
     Route: 048
     Dates: start: 20240614
  2. DIACOMIT [Suspect]
     Active Substance: STIRIPENTOL
     Indication: Severe myoclonic epilepsy of infancy
     Dosage: 500MG, 250MG, AND 250MG BY MOUTH IN THREE SEPARATE DOSES EACH DAY
     Route: 048
     Dates: start: 20240614, end: 20240803
  3. DEPAKOTE [Concomitant]
     Active Substance: DIVALPROEX SODIUM
     Indication: Product used for unknown indication
     Route: 065
  4. ZONISAMIDE [Concomitant]
     Active Substance: ZONISAMIDE
     Indication: Product used for unknown indication
     Route: 065
  5. LEVOCARNITINE [Concomitant]
     Active Substance: LEVOCARNITINE
     Indication: Product used for unknown indication
     Route: 065

REACTIONS (3)
  - Product preparation issue [Unknown]
  - Product use in unapproved indication [Unknown]
  - Seizure [Unknown]

NARRATIVE: CASE EVENT DATE: 20240601
